FAERS Safety Report 9168283 (Version 2)
Quarter: 2013Q2

REPORT INFORMATION
  Report Type: Spontaneous
  Country: SE (occurrence: SE)
  Receive Date: 20130318
  Receipt Date: 20130410
  Transmission Date: 20140414
  Serious: Yes (Other)
  Sender: FDA-Public Use
  Company Number: PHHY2013SE025791

PATIENT
  Age: 67 Year
  Sex: Female

DRUGS (3)
  1. RITALIN [Suspect]
     Indication: ASPERGER^S DISORDER
     Dosage: UNK UKN, UNK
     Dates: start: 2010, end: 201302
  2. B12-VITAMIIN [Concomitant]
  3. IRON [Concomitant]

REACTIONS (1)
  - Incontinence [Not Recovered/Not Resolved]
